FAERS Safety Report 6539675-X (Version None)
Quarter: 2010Q1

REPORT INFORMATION
  Report Type: 
  Country: None (occurrence: None)
  Receive Date: 20100115
  Receipt Date: 20081117
  Transmission Date: 20100710
  Serious: Yes (Hospitalization)
  Sender: FDA-Public Use
  Company Number: CA-ASTRAZENECA-2008UW15914

PATIENT
  Age: 10272 Day
  Sex: Male

DRUGS (12)
  1. SEROQUEL XR [Suspect]
     Indication: SCHIZOPHRENIA
     Route: 048
     Dates: start: 20080722, end: 20080722
  2. SEROQUEL XR [Suspect]
     Route: 048
     Dates: start: 20080723, end: 20080723
  3. SEROQUEL XR [Suspect]
     Route: 048
     Dates: start: 20080724, end: 20080806
  4. SEROQUEL [Concomitant]
     Indication: SEDATION
     Route: 048
     Dates: start: 20080611, end: 20080721
  5. SEROQUEL [Concomitant]
     Dosage: 300 MG
     Route: 048
     Dates: start: 20080722, end: 20080722
  6. SEROQUEL [Concomitant]
     Dosage: 150 MG
     Route: 048
     Dates: start: 20080723, end: 20080723
  7. ZYPREXA ZYDIS [Concomitant]
     Indication: SCHIZOPHRENIA
     Dosage: 30 MG
     Route: 048
     Dates: start: 20080702, end: 20080708
  8. ZYPREXA ZYDIS [Concomitant]
     Dosage: 40 MG
     Route: 048
     Dates: start: 20080709, end: 20080721
  9. ZYPREXA ZYDIS [Concomitant]
     Dosage: 20 MG
     Route: 048
     Dates: start: 20080722, end: 20080722
  10. ZYPREXA ZYDIS [Concomitant]
     Dosage: 10 MG
     Route: 048
     Dates: start: 20080723, end: 20080723
  11. WELLBUTRIN XL [Concomitant]
     Indication: DEPRESSION
     Dosage: 300 MG
     Route: 048
     Dates: end: 20080806
  12. WELLBUTRIN XL [Concomitant]
     Route: 048
     Dates: start: 20080807

REACTIONS (1)
  - PSYCHOTIC DISORDER [None]
